FAERS Safety Report 7892929-7 (Version None)
Quarter: 2011Q4

REPORT INFORMATION
  Report Type: 
  Country: None (occurrence: None)
  Receive Date: 20111104
  Receipt Date: 20111026
  Transmission Date: 20120403
  Serious: Yes (Hospitalization)
  Sender: FDA-Public Use
  Company Number: SE-EISAI INC-E2020-09909-SPO-SE

PATIENT
  Sex: Male

DRUGS (7)
  1. METOPROLOL SUCCINATE [Suspect]
     Dosage: UNKNOWN
     Dates: end: 20100731
  2. ARICEPT [Suspect]
     Route: 048
     Dates: start: 20100707
  3. XALATAN [Concomitant]
     Dosage: UNKNOWN
     Route: 047
  4. ASPIRIN [Concomitant]
     Dosage: UNKNOWN
  5. ARICEPT [Suspect]
     Indication: DEMENTIA
     Route: 048
     Dates: start: 20100609, end: 20100706
  6. FELODIPINE [Concomitant]
     Dosage: UNKNOWN
  7. ISOSORBIDE MONONITRATE [Concomitant]
     Dosage: UNKNOWN

REACTIONS (3)
  - BRADYCARDIA [None]
  - SICK SINUS SYNDROME [None]
  - SYNCOPE [None]
